FAERS Safety Report 20138715 (Version 1)
Quarter: 2021Q4

REPORT INFORMATION
  Report Type: Spontaneous
  Country: CN (occurrence: CN)
  Receive Date: 20211202
  Receipt Date: 20211202
  Transmission Date: 20220303
  Serious: Yes (Other)
  Sender: FDA-Public Use
  Company Number: CN-KYOWAKIRIN-2021AKK020387

PATIENT
  Age: 75 Year
  Sex: Female

DRUGS (1)
  1. CINACALCET HYDROCHLORIDE [Suspect]
     Active Substance: CINACALCET HYDROCHLORIDE
     Indication: Hyperparathyroidism secondary
     Dosage: 25 MILLIGRAM, QD
     Route: 048
     Dates: start: 20211108, end: 20211111

REACTIONS (3)
  - Dysphoria [Recovering/Resolving]
  - Depressed level of consciousness [Recovering/Resolving]
  - Vomiting [Recovering/Resolving]

NARRATIVE: CASE EVENT DATE: 20211110
